FAERS Safety Report 16609288 (Version 1)
Quarter: 2019Q3

REPORT INFORMATION
  Report Type: Spontaneous
  Country: US (occurrence: US)
  Receive Date: 20190722
  Receipt Date: 20190722
  Transmission Date: 20191004
  Serious: Yes (Death, Other)
  Sender: FDA-Public Use
  Company Number: US-BAYER-2019-131642

PATIENT

DRUGS (24)
  1. AMLODIPINE BESYLATE. [Concomitant]
     Active Substance: AMLODIPINE BESYLATE
  2. FISH OIL [Concomitant]
     Active Substance: FISH OIL
  3. MELATONIN [Concomitant]
     Active Substance: MELATONIN
  4. POTASSIUM CHLORIDE. [Concomitant]
     Active Substance: POTASSIUM CHLORIDE
  5. PROPRANOLOL [Concomitant]
     Active Substance: PROPRANOLOL HYDROCHLORIDE
  6. SYNTHROID [Concomitant]
     Active Substance: LEVOTHYROXINE SODIUM
  7. TRAMADOL. [Concomitant]
     Active Substance: TRAMADOL
  8. OXYCODONE [Concomitant]
     Active Substance: OXYCODONE
  9. GENOTROPIN [Suspect]
     Active Substance: SOMATROPIN
     Dosage: 0.2 MG, QD
     Route: 058
  10. TESTOSTERONE. [Concomitant]
     Active Substance: TESTOSTERONE
  11. COENZYME Q10 [Concomitant]
     Active Substance: UBIDECARENONE
  12. ZANTAC [Concomitant]
     Active Substance: RANITIDINE HYDROCHLORIDE
  13. EZETIMIBE/SIMVASTATIN [Concomitant]
     Active Substance: EZETIMIBE\SIMVASTATIN
     Dosage: UNK
  14. BAYER LOW DOSE [Suspect]
     Active Substance: ASPIRIN
     Dosage: UNK
  15. VYTORIN [Concomitant]
     Active Substance: EZETIMIBE\SIMVASTATIN
  16. CALCIUM CARBONATE. [Concomitant]
     Active Substance: CALCIUM CARBONATE
  17. CYPROHEPTADINE. [Concomitant]
     Active Substance: CYPROHEPTADINE
  18. JANUMET [Concomitant]
     Active Substance: METFORMIN HYDROCHLORIDE\SITAGLIPTIN PHOSPHATE
  19. HYDROCHLOROTHIAZIDE. [Concomitant]
     Active Substance: HYDROCHLOROTHIAZIDE
  20. MULTIVITAMINS + MINERALS PLUS LUTEIN [Concomitant]
     Active Substance: MINERALS\VITAMINS
  21. NORDITROPIN [Concomitant]
     Active Substance: SOMATROPIN
  22. AMITRIPTYLINE [Concomitant]
     Active Substance: AMITRIPTYLINE
  23. NORVASC [Concomitant]
     Active Substance: AMLODIPINE BESYLATE
  24. TYLENOL WITH CODEINE [Concomitant]
     Active Substance: ACETAMINOPHEN\CODEINE PHOSPHATE

REACTIONS (3)
  - Meningitis bacterial [None]
  - Drug hypersensitivity [None]
  - Brain stem stroke [Fatal]
